FAERS Safety Report 23769218 (Version 3)
Quarter: 2024Q3

REPORT INFORMATION
  Report Type: Spontaneous
  Country: CA (occurrence: CA)
  Receive Date: 20240422
  Receipt Date: 20240806
  Transmission Date: 20241017
  Serious: Yes (Other)
  Sender: PFIZER
  Company Number: CA-PFIZER INC-202400053128

PATIENT
  Age: 58 Year
  Sex: Female

DRUGS (4)
  1. RUXIENCE [Suspect]
     Active Substance: RITUXIMAB-PVVR
     Indication: Rheumatoid arthritis
     Dosage: UNK
  2. RUXIENCE [Suspect]
     Active Substance: RITUXIMAB-PVVR
     Dosage: 1000MG X1, 1 DOSE OF RETREATMENT
     Route: 042
     Dates: start: 20240416, end: 20240416
  3. RUXIENCE [Suspect]
     Active Substance: RITUXIMAB-PVVR
     Dosage: 1000MG X1, 1 DOSE OF RETREATMENT
     Route: 042
     Dates: start: 20240416, end: 20240416
  4. METHOTREXATE [Concomitant]
     Active Substance: METHOTREXATE
     Dosage: 15 MG, WEEKLY
     Route: 048
     Dates: start: 2012

REACTIONS (8)
  - Syncope [Recovered/Resolved]
  - Off label use [Unknown]
  - Gastrointestinal disorder [Not Recovered/Not Resolved]
  - Injection site pain [Recovered/Resolved]
  - Injection site discomfort [Recovered/Resolved]
  - Dizziness [Recovered/Resolved]
  - Vein disorder [Recovered/Resolved]
  - Condition aggravated [Unknown]

NARRATIVE: CASE EVENT DATE: 20240101
